FAERS Safety Report 8273497-7 (Version None)
Quarter: 2012Q2

REPORT INFORMATION
  Report Type: 
  Country: None (occurrence: None)
  Receive Date: 20120409
  Receipt Date: 20120409
  Transmission Date: 20120825
  Serious: Yes (Other)
  Sender: FDA-Public Use
  Company Number: None

PATIENT
  Sex: Female
  Weight: 150.5942 kg

DRUGS (1)
  1. PRAVASTATIN [Suspect]
     Indication: HYPERLIPIDAEMIA
     Dosage: PRAVASTATIN 40MG QD ORALLY
     Route: 048
     Dates: start: 20120315, end: 20120403

REACTIONS (2)
  - MUSCLE SPASMS [None]
  - MYALGIA [None]
